FAERS Safety Report 12781361 (Version 1)
Quarter: 2016Q3

REPORT INFORMATION
  Report Type: Spontaneous
  Country: US (occurrence: US)
  Receive Date: 20160926
  Receipt Date: 20160926
  Transmission Date: 20161109
  Serious: Yes (Other)
  Sender: FDA-Public Use
  Company Number: US-ADAPT PHARMA INC-2016ADP00117

PATIENT
  Age: 58 Year
  Sex: Female
  Weight: 63.49 kg

DRUGS (3)
  1. NALOXONE HYDROCHLORIDE. [Suspect]
     Active Substance: NALOXONE HYDROCHLORIDE
     Indication: OVERDOSE
     Dosage: UNK,UNK
     Route: 065
     Dates: start: 20160729
  2. TYVASO [Suspect]
     Active Substance: TREPROSTINIL
     Indication: PULMONARY ARTERIAL HYPERTENSION
     Dosage: 18-54 ?G 4X/DAY
     Dates: start: 20141208
  3. OPSUMIT [Suspect]
     Active Substance: MACITENTAN
     Dosage: UNK,UNK
     Route: 065
     Dates: end: 2016

REACTIONS (10)
  - Nervousness [Unknown]
  - Presyncope [Unknown]
  - Hypoaesthesia [Unknown]
  - Headache [Unknown]
  - Oesophageal food impaction [Unknown]
  - Asthenia [Unknown]
  - Insomnia [Unknown]
  - Syncope [Unknown]
  - Cough [Unknown]
  - Dizziness [Unknown]

NARRATIVE: CASE EVENT DATE: 20160729
